FAERS Safety Report 18944537 (Version 2)
Quarter: 2021Q1

REPORT INFORMATION
  Report Type: Spontaneous
  Country: JP (occurrence: JP)
  Receive Date: 20210226
  Receipt Date: 20210309
  Transmission Date: 20210420
  Serious: Yes (Hospitalization)
  Sender: FDA-Public Use
  Company Number: JP-UCBSA-2021005009

PATIENT
  Age: 6 Decade
  Sex: Male

DRUGS (3)
  1. VIMPAT [Suspect]
     Active Substance: LACOSAMIDE
     Dosage: 200 MG A DAY
     Dates: start: 20200708, end: 20201210
  2. VIMPAT [Suspect]
     Active Substance: LACOSAMIDE
     Indication: EPILEPSY
     Dosage: 50 MILLIGRAM, 2X/DAY (BID)
     Route: 048
     Dates: start: 20200401
  3. SODIUM VALPROATE [Concomitant]
     Active Substance: VALPROATE SODIUM
     Indication: EPILEPSY
     Dosage: 600 MILLIGRAM, 2X/DAY (BID)
     Route: 048

REACTIONS (1)
  - Platelet count decreased [Recovered/Resolved]

NARRATIVE: CASE EVENT DATE: 20201209
